FAERS Safety Report 6452701-1 (Version None)
Quarter: 2009Q4

REPORT INFORMATION
  Report Type: 
  Country: None (occurrence: None)
  Receive Date: 20091124
  Receipt Date: 20091118
  Transmission Date: 20100525
  Serious: Yes (Death)
  Sender: FDA-Public Use
  Company Number: US-ASTRAZENECA-2009SE21858

PATIENT
  Sex: Female
  Weight: 86.6 kg

DRUGS (4)
  1. SEROQUEL XR [Suspect]
     Indication: BIPOLAR I DISORDER
     Route: 048
     Dates: start: 20090710, end: 20090719
  2. OPANA ER [Concomitant]
     Indication: BACK PAIN
     Route: 048
     Dates: start: 20070201
  3. OPANA ER [Concomitant]
     Indication: BLADDER PAIN
     Route: 048
     Dates: start: 20070201
  4. ATIVAN [Concomitant]
     Indication: SEDATION

REACTIONS (1)
  - COMPLETED SUICIDE [None]
